FAERS Safety Report 9745386 (Version 1)
Quarter: 2013Q4

REPORT INFORMATION
  Report Type: Spontaneous
  Country: US (occurrence: None)
  Receive Date: 20131206
  Receipt Date: 20131206
  Transmission Date: 20140711
  Serious: Yes (Other)
  Sender: FDA-Public Use
  Company Number: None

PATIENT
  Age: 56 Year
  Sex: Female
  Weight: 68.95 kg

DRUGS (1)
  1. SYNTHROID 25 MCG [Suspect]
     Indication: THYROID DISORDER
     Dosage: 2 YEARS 1 TAB ONCE DAILY TAKEN BY MOUTH

REACTIONS (14)
  - Rash [None]
  - Skin haemorrhage [None]
  - Rash erythematous [None]
  - Skin discolouration [None]
  - Chest pain [None]
  - Swollen tongue [None]
  - Lip swelling [None]
  - Dyspnoea [None]
  - Asthenia [None]
  - Muscle spasms [None]
  - Nervousness [None]
  - Headache [None]
  - Vomiting [None]
  - Weight decreased [None]
